FAERS Safety Report 14081322 (Version 1)
Quarter: 2017Q4

REPORT INFORMATION
  Report Type: Spontaneous
  Country: US (occurrence: None)
  Receive Date: 20171013
  Receipt Date: 20171013
  Transmission Date: 20180321
  Serious: No
  Sender: FDA-Public Use
  Company Number: None

PATIENT

DRUGS (1)
  1. NEWMAN^S APNO OINTMENT (BETAMETHASONE\MICONAZOLE\MUPIROCIN) [Suspect]
     Active Substance: BETAMETHASONE\MICONAZOLE\MUPIROCIN

REACTIONS (2)
  - Product formulation issue [None]
  - Drug dispensing error [None]
